FAERS Safety Report 5279416-X (Version None)
Quarter: 2007Q1

REPORT INFORMATION
  Report Type: 
  Country: None (occurrence: None)
  Receive Date: 20070328
  Receipt Date: 20070319
  Transmission Date: 20070707
  Serious: Yes (Hospitalization, Other)
  Sender: FDA-Public Use
  Company Number: PHEH2007US03262

PATIENT
  Age: 63 Year
  Sex: Female
  Weight: 56.235 kg

DRUGS (9)
  1. ESTRATAB [Suspect]
     Indication: HORMONE REPLACEMENT THERAPY
  2. OGEN [Suspect]
     Indication: HORMONE REPLACEMENT THERAPY
  3. PREMARIN [Suspect]
     Indication: HORMONE REPLACEMENT THERAPY
  4. ESTROPIPATE [Suspect]
     Indication: HORMONE REPLACEMENT THERAPY
  5. TRIAMTERENE AND HYDROCHLOROTHIAZID ^HARRIS^ [Concomitant]
     Indication: HYPERTENSION
     Dates: start: 19980101
  6. LISINOPRIL [Concomitant]
     Indication: HYPERTENSION
     Dates: start: 20021201
  7. LIPITOR [Concomitant]
     Indication: BLOOD CHOLESTEROL INCREASED
     Dosage: 10 MG, UNK
  8. ASPIRIN [Concomitant]
  9. ESTRADERM [Suspect]
     Indication: HORMONE REPLACEMENT THERAPY
     Dosage: UNK, UNK

REACTIONS (27)
  - AMAUROSIS FUGAX [None]
  - ANXIETY [None]
  - ASTHENIA [None]
  - BIOPSY BREAST ABNORMAL [None]
  - BIOPSY LYMPH GLAND [None]
  - BREAST CANCER [None]
  - BREAST CANCER IN SITU [None]
  - BREAST CELLULITIS [None]
  - BREAST MASS [None]
  - BREAST MICROCALCIFICATION [None]
  - CAROTID ARTERY STENOSIS [None]
  - CONCOMITANT DISEASE PROGRESSION [None]
  - ERYTHEMA [None]
  - GAIT DISTURBANCE [None]
  - HEADACHE [None]
  - LYMPHADENECTOMY [None]
  - LYMPHOEDEMA [None]
  - MALAISE [None]
  - MASTECTOMY [None]
  - MUSCULOSKELETAL PAIN [None]
  - OESTROGEN RECEPTOR ASSAY POSITIVE [None]
  - OSTEOPENIA [None]
  - OSTEOPOROSIS [None]
  - PRESYNCOPE [None]
  - PROGESTERONE RECEPTOR ASSAY POSITIVE [None]
  - SEROMA [None]
  - WHITE BLOOD CELL COUNT INCREASED [None]
